FAERS Safety Report 8290955-X (Version None)
Quarter: 2012Q2

REPORT INFORMATION
  Report Type: 
  Country: None (occurrence: None)
  Receive Date: 20120417
  Receipt Date: 20120120
  Transmission Date: 20120825
  Serious: No
  Sender: FDA-Public Use
  Company Number: US-ASTRAZENECA-2012SE04477

PATIENT
  Age: 59 Year
  Sex: Male
  Weight: 88.5 kg

DRUGS (3)
  1. NEXIUM [Suspect]
     Indication: GASTROOESOPHAGEAL REFLUX DISEASE
     Route: 048
  2. OTHER MEDICATIONS [Concomitant]
     Indication: OESOPHAGEAL ULCER
  3. NEXIUM [Suspect]
     Indication: ULCER
     Route: 048

REACTIONS (4)
  - INCORRECT DOSE ADMINISTERED [None]
  - ABDOMINAL DISTENSION [None]
  - FLATULENCE [None]
  - HEADACHE [None]
